FAERS Safety Report 12929595 (Version 2)
Quarter: 2016Q4

REPORT INFORMATION
  Report Type: Report from Study
  Country: CA (occurrence: CA)
  Receive Date: 20161110
  Receipt Date: 20161111
  Transmission Date: 20170207
  Serious: Yes (Death)
  Sender: FDA-Public Use
  Company Number: CA-HLSUS-2016-CA-000608

PATIENT
  Age: 84 Year
  Sex: Male

DRUGS (1)
  1. CLOZARIL [Suspect]
     Active Substance: CLOZAPINE
     Route: 048
     Dates: start: 20151111, end: 20161109

REACTIONS (3)
  - Death [Fatal]
  - Depressed level of consciousness [Unknown]
  - Eating disorder [Unknown]

NARRATIVE: CASE EVENT DATE: 2016
